FAERS Safety Report 12389051 (Version 1)
Quarter: 2016Q2

REPORT INFORMATION
  Report Type: Spontaneous
  Country: US (occurrence: US)
  Receive Date: 20160520
  Receipt Date: 20160520
  Transmission Date: 20160815
  Serious: No
  Sender: FDA-Public Use
  Company Number: US-BAYER-2016-096455

PATIENT
  Sex: Female

DRUGS (1)
  1. ALEVE [Suspect]
     Active Substance: NAPROXEN SODIUM
     Indication: INFLAMMATION
     Dosage: 2 DF, ONCE
     Dates: start: 20160517, end: 20160517

REACTIONS (3)
  - Intercepted drug prescribing error [None]
  - Off label use [None]
  - Off label use [None]

NARRATIVE: CASE EVENT DATE: 20160517
